FAERS Safety Report 18168649 (Version 2)
Quarter: 2020Q3

REPORT INFORMATION
  Report Type: Spontaneous
  Country: US (occurrence: US)
  Receive Date: 20200819
  Receipt Date: 20200828
  Transmission Date: 20201103
  Serious: Yes (Hospitalization)
  Sender: FDA-Public Use
  Company Number: US-TEVA-2020-US-1815236

PATIENT
  Age: 66 Year
  Sex: Male

DRUGS (3)
  1. PROPRANOLOL [Suspect]
     Active Substance: PROPRANOLOL HYDROCHLORIDE
     Indication: HOLMES TREMOR
     Route: 065
  2. CARBIDOPA AND LEVODOPA [Suspect]
     Active Substance: CARBIDOPA\LEVODOPA
     Indication: HOLMES TREMOR
     Route: 065
  3. LEVETIRACETAM. [Suspect]
     Active Substance: LEVETIRACETAM
     Indication: HOLMES TREMOR
     Route: 065

REACTIONS (5)
  - Drug ineffective [Unknown]
  - Tremor [Recovering/Resolving]
  - Dystonia [Recovering/Resolving]
  - Pain in jaw [Recovering/Resolving]
  - Quality of life decreased [Recovering/Resolving]
